FAERS Safety Report 4760156-8 (Version None)
Quarter: 2005Q3

REPORT INFORMATION
  Report Type: 
  Country: None (occurrence: None)
  Receive Date: 20050902
  Receipt Date: 20050824
  Transmission Date: 20060218
  Serious: Yes (Death)
  Sender: FDA-Public Use
  Company Number: ES-ABBOTT-05P-144-0309477-00

PATIENT
  Sex: Male

DRUGS (2)
  1. ZEMPLAR [Suspect]
     Indication: HYPERPARATHYROIDISM SECONDARY
     Route: 042
  2. ZEMPLAR [Suspect]
     Indication: RENAL FAILURE CHRONIC

REACTIONS (1)
  - CARDIAC ARREST [None]
